FAERS Safety Report 5875769-X (Version None)
Quarter: 2008Q3

REPORT INFORMATION
  Report Type: 
  Country: None (occurrence: None)
  Receive Date: 20080909
  Receipt Date: 20080828
  Transmission Date: 20090109
  Serious: Yes (Death)
  Sender: FDA-Public Use
  Company Number: FR-PFIZER INC-2008072327

PATIENT
  Sex: Male

DRUGS (1)
  1. SU-011,248 [Suspect]
     Dosage: DAILY DOSE:37.5MG
     Route: 048
     Dates: start: 20080717, end: 20080812

REACTIONS (1)
  - HAEMORRHAGE [None]
